FAERS Safety Report 9345937 (Version 1)
Quarter: 2013Q2

REPORT INFORMATION
  Report Type: Spontaneous
  Country: US (occurrence: US)
  Receive Date: 20130613
  Receipt Date: 20130613
  Transmission Date: 20140414
  Serious: No
  Sender: FDA-Public Use
  Company Number: US-BAYER-2013-069932

PATIENT
  Age: 66 Year
  Sex: Male

DRUGS (2)
  1. GADAVIST [Suspect]
     Indication: CONTRAST MEDIA REACTION
     Dosage: 8 CC OF A 10 ML VIAL, 1 MMOL GADOBUTROL /ML
     Route: 042
     Dates: start: 20130520, end: 20130520
  2. GADAVIST [Suspect]
     Indication: NERVOUS SYSTEM DISORDER

REACTIONS (2)
  - Injection site swelling [Recovering/Resolving]
  - Injection site erythema [Recovering/Resolving]
